FAERS Safety Report 4447078-7 (Version None)
Quarter: 2004Q3

REPORT INFORMATION
  Report Type: 
  Country: None (occurrence: None)
  Receive Date: 20040813
  Receipt Date: 20040506
  Transmission Date: 20050211
  Serious: No
  Sender: FDA-Public Use
  Company Number: S04-USA-02945-01

PATIENT
  Age: 91 Year
  Sex: Female

DRUGS (8)
  1. NAMENDA [Suspect]
     Indication: DEMENTIA ALZHEIMER'S TYPE
     Dosage: 20 MG QD; PO
     Route: 048
     Dates: start: 20040212, end: 20040310
  2. NAMENDA [Suspect]
     Indication: DEMENTIA ALZHEIMER'S TYPE
     Dosage: 5 MG QD; PO
     Route: 048
     Dates: start: 20040122, end: 20040128
  3. NAMENDA [Suspect]
     Indication: DEMENTIA ALZHEIMER'S TYPE
     Dosage: 10 MG QD; PO
     Route: 048
     Dates: start: 20040129, end: 20040204
  4. NAMENDA [Suspect]
     Indication: DEMENTIA ALZHEIMER'S TYPE
     Dosage: 15 MG QD; PO
     Route: 048
     Dates: start: 20040205, end: 20040211
  5. LASIX (FURSEMIDE) [Concomitant]
  6. POTASSIUM CHLORIDE [Concomitant]
  7. PRILOSEC [Concomitant]
  8. CALCIUM [Concomitant]

REACTIONS (1)
  - DYSPNOEA EXACERBATED [None]
